FAERS Safety Report 17643284 (Version 1)
Quarter: 2020Q2

REPORT INFORMATION
  Report Type: Spontaneous
  Country: US (occurrence: US)
  Receive Date: 20200408
  Receipt Date: 20200408
  Transmission Date: 20200713
  Serious: Yes (Other)
  Sender: FDA-Public Use
  Company Number: US-DRREDDYS-USA/USA/20/0121712

PATIENT
  Age: 83 Year
  Sex: Female

DRUGS (2)
  1. DEXAMETHASONE SODIUM PHOSPHATE INJECTION, 4 MG/ML [Concomitant]
     Active Substance: DEXAMETHASONE SODIUM PHOSPHATE
     Indication: PRODUCT USED FOR UNKNOWN INDICATION
  2. BORTEZOMIB. [Suspect]
     Active Substance: BORTEZOMIB
     Indication: PLASMA CELL MYELOMA
     Dosage: RECEIVED 4 CYCLES

REACTIONS (2)
  - Demyelinating polyneuropathy [Unknown]
  - Axonal neuropathy [Unknown]
